FAERS Safety Report 5900114-0 (Version None)
Quarter: 2008Q3

REPORT INFORMATION
  Report Type: 
  Country: None (occurrence: None)
  Receive Date: 20080926
  Receipt Date: 20080915
  Transmission Date: 20090109
  Serious: Yes (Other)
  Sender: FDA-Public Use
  Company Number: US-WYE-H03088508

PATIENT
  Sex: Female
  Weight: 59.02 kg

DRUGS (1)
  1. PROTONIX [Suspect]
     Indication: GASTROOESOPHAGEAL REFLUX DISEASE
     Route: 048
     Dates: start: 20041001, end: 20080908

REACTIONS (8)
  - CONDITION AGGRAVATED [None]
  - LABORATORY TEST INTERFERENCE [None]
  - MULTIPLE SCLEROSIS [None]
  - NEURITIS [None]
  - NEUROGENIC BLADDER [None]
  - NEUROPATHY PERIPHERAL [None]
  - URINARY INCONTINENCE [None]
  - URINARY RETENTION [None]
